FAERS Safety Report 25604989 (Version 1)
Quarter: 2025Q3

REPORT INFORMATION
  Report Type: Spontaneous
  Country: CH (occurrence: CH)
  Receive Date: 20250725
  Receipt Date: 20250725
  Transmission Date: 20251020
  Serious: Yes (Life-Threatening, Hospitalization, Other)
  Sender: Unknown Manufacturer
  Company Number: CH-STRIDES ARCOLAB LIMITED-2025OS000251

PATIENT
  Age: 7 Decade
  Sex: Male

DRUGS (8)
  1. BUPIVACAINE [Interacting]
     Active Substance: BUPIVACAINE
     Indication: Anaesthetic ophthalmic procedure
  2. BUPIVACAINE [Interacting]
     Active Substance: BUPIVACAINE
     Indication: Local anaesthesia
  3. MEPIVACAINE [Interacting]
     Active Substance: MEPIVACAINE HYDROCHLORIDE
     Indication: Anaesthetic ophthalmic procedure
  4. MEPIVACAINE [Interacting]
     Active Substance: MEPIVACAINE HYDROCHLORIDE
     Indication: Local anaesthesia
  5. HYALASE [Interacting]
     Active Substance: HYALURONIDASE
     Indication: Anaesthetic ophthalmic procedure
  6. HYALASE [Interacting]
     Active Substance: HYALURONIDASE
     Indication: Local anaesthesia
  7. FENTANYL [Concomitant]
     Active Substance: FENTANYL
     Indication: Sedation
     Route: 065
  8. THIOPENTAL [Concomitant]
     Active Substance: THIOPENTAL
     Indication: Sedation
     Route: 065

REACTIONS (4)
  - Local anaesthetic systemic toxicity [None]
  - Neurotoxicity [None]
  - Drug interaction [Unknown]
  - Off label use [Unknown]
